FAERS Safety Report 5827340-3 (Version None)
Quarter: 2008Q3

REPORT INFORMATION
  Report Type: 
  Country: None (occurrence: None)
  Receive Date: 20080730
  Receipt Date: 20080724
  Transmission Date: 20090109
  Serious: Yes (Hospitalization, Disabling, Other)
  Sender: FDA-Public Use
  Company Number: PL-AVENTIS-200815101GDDC

PATIENT
  Age: 57 Year
  Sex: Female
  Weight: 65 kg

DRUGS (7)
  1. ARAVA [Suspect]
     Indication: RHEUMATOID ARTHRITIS
     Route: 048
     Dates: start: 20070719, end: 20080327
  2. ARAVA [Suspect]
     Route: 048
     Dates: start: 20080415, end: 20080529
  3. METYPRED [Concomitant]
     Indication: RHEUMATOID ARTHRITIS
     Route: 048
  4. ASPICAM [Concomitant]
     Indication: RHEUMATOID ARTHRITIS
     Route: 048
  5. OMEPRAZOLE [Concomitant]
     Indication: RHEUMATOID ARTHRITIS
     Route: 048
  6. HEPATIL [Concomitant]
     Indication: RHEUMATOID ARTHRITIS
     Dosage: DOSE: UNK
     Route: 048
  7. SUMMAMED [Concomitant]
     Dates: start: 20080301, end: 20080301

REACTIONS (1)
  - ALANINE AMINOTRANSFERASE INCREASED [None]
